FAERS Safety Report 5622303-5 (Version None)
Quarter: 2008Q1

REPORT INFORMATION
  Report Type: 
  Country: None (occurrence: None)
  Receive Date: 20080114
  Receipt Date: 20071015
  Transmission Date: 20080703
  Serious: Yes (Other)
  Sender: FDA-Public Use
  Company Number: A03200706020

PATIENT
  Age: 71 Year
  Sex: Male

DRUGS (3)
  1. PLAVIX [Suspect]
     Indication: CORONARY ARTERY BYPASS
     Dosage: 75 MG QD - ORAL
     Route: 048
     Dates: start: 20040101
  2. COLESEVELAM HYDROCHLORIDE [Concomitant]
  3. EZETIMIBE + SIMVASTATIN [Concomitant]

REACTIONS (2)
  - CATARACT [None]
  - DIPLOPIA [None]
